FAERS Safety Report 25450022 (Version 1)
Quarter: 2025Q2

REPORT INFORMATION
  Report Type: Spontaneous
  Country: US (occurrence: US)
  Receive Date: 20250618
  Receipt Date: 20250618
  Transmission Date: 20250717
  Serious: Yes (Hospitalization, Other)
  Sender: ZYDUS PHARM
  Company Number: US-CADILA HEALTHCARE LIMITED-US-ZYDUS-124874

PATIENT

DRUGS (4)
  1. AMIODARONE [Suspect]
     Active Substance: AMIODARONE
     Indication: Prophylaxis
     Route: 042
  2. NOREPINEPHRINE [Concomitant]
     Active Substance: NOREPINEPHRINE
     Indication: Haemodynamic instability
     Route: 065
  3. METOPROLOL [Concomitant]
     Active Substance: METOPROLOL
     Indication: Prophylaxis
     Route: 065
  4. FUROSEMIDE [Concomitant]
     Active Substance: FUROSEMIDE
     Indication: Diuretic therapy
     Route: 065

REACTIONS (4)
  - Pulmonary toxicity [Recovering/Resolving]
  - Pulmonary oedema [Recovering/Resolving]
  - Respiratory failure [Recovering/Resolving]
  - Acute respiratory distress syndrome [Recovering/Resolving]
